FAERS Safety Report 20891576 (Version 1)
Quarter: 2022Q2

REPORT INFORMATION
  Report Type: Spontaneous
  Country: US (occurrence: US)
  Receive Date: 20220530
  Receipt Date: 20220530
  Transmission Date: 20220721
  Serious: No
  Sender: FDA-Public Use
  Company Number: US-BRISTOL-MYERS SQUIBB COMPANY-2022-034147

PATIENT
  Age: 52 Year
  Sex: Male
  Weight: 79.83 kg

DRUGS (1)
  1. REVLIMID [Suspect]
     Active Substance: LENALIDOMIDE
     Indication: Plasma cell myeloma
     Dosage: 21 ON 7 OFF
     Route: 048
     Dates: start: 20220315

REACTIONS (4)
  - Muscle spasms [Not Recovered/Not Resolved]
  - Pain [Not Recovered/Not Resolved]
  - Semen discolouration [Not Recovered/Not Resolved]
  - Affective disorder [Not Recovered/Not Resolved]
